FAERS Safety Report 15507538 (Version 4)
Quarter: 2025Q3

REPORT INFORMATION
  Report Type: Spontaneous
  Country: EU (occurrence: EU)
  Receive Date: 20181016
  Receipt Date: 20250804
  Transmission Date: 20251021
  Serious: Yes (Hospitalization, Other)
  Sender: SANOFI AVENTIS
  Company Number: EU-SAKK-2018SA283717AA

PATIENT
  Age: 74 Year
  Sex: Male

DRUGS (5)
  1. DOCETAXEL [Suspect]
     Active Substance: DOCETAXEL
     Indication: Non-small cell lung cancer stage IV
     Dates: start: 20141004, end: 201502
  2. DOCETAXEL [Suspect]
     Active Substance: DOCETAXEL
     Dates: start: 201502, end: 201502
  3. NINTEDANIB [Suspect]
     Active Substance: NINTEDANIB
     Indication: Non-small cell lung cancer stage IV
     Dates: start: 20141004
  4. NINTEDANIB [Suspect]
     Active Substance: NINTEDANIB
  5. ERLOTINIB [Suspect]
     Active Substance: ERLOTINIB
     Indication: Non-small cell lung cancer stage IV

REACTIONS (1)
  - Non-small cell lung cancer stage IV [Unknown]

NARRATIVE: CASE EVENT DATE: 20150301
